FAERS Safety Report 10241180 (Version 1)
Quarter: 2014Q2

REPORT INFORMATION
  Report Type: Spontaneous
  Country: US (occurrence: US)
  Receive Date: 20140617
  Receipt Date: 20140617
  Transmission Date: 20141212
  Serious: Yes (Life-Threatening, Hospitalization, Other)
  Sender: FDA-Public Use
  Company Number: US-B.I. PHARMACEUTICALS,INC./RIDGEFIELD-2014-BI-26799GD

PATIENT
  Age: 62 Year
  Sex: Female

DRUGS (1)
  1. DOCUSATE SODIUM [Suspect]
     Indication: CONSTIPATION
     Dosage: 4000 MG
     Route: 048

REACTIONS (11)
  - Cardiogenic shock [Recovered/Resolved]
  - Pulmonary oedema [Recovered/Resolved]
  - Cardiac failure [Unknown]
  - Drug abuse [Unknown]
  - Overdose [Unknown]
  - Chest discomfort [Unknown]
  - Dyspnoea [Unknown]
  - Diarrhoea [Unknown]
  - Dyspnoea [Unknown]
  - Angina pectoris [Unknown]
  - Oliguria [Unknown]
